FAERS Safety Report 13342377 (Version 2)
Quarter: 2017Q1

REPORT INFORMATION
  Report Type: Report from Study
  Country: GE (occurrence: GE)
  Receive Date: 20170316
  Receipt Date: 20170320
  Transmission Date: 20170428
  Serious: Yes (Other)
  Sender: FDA-Public Use
  Company Number: GE-TEVA-748542ISR

PATIENT
  Age: 2 Year
  Sex: Male
  Weight: 14.1 kg

DRUGS (11)
  1. NISTATIN [Concomitant]
     Active Substance: NYSTATIN
     Indication: INFECTION
     Dosage: 12 ML DAILY;
     Route: 048
     Dates: start: 20170308, end: 20170313
  2. NEUPOGEN [Suspect]
     Active Substance: FILGRASTIM
     Indication: NEUTROPENIA
     Dosage: 70.5 MICROGRAM DAILY;
     Route: 058
     Dates: start: 20170303, end: 20170313
  3. ACTINOMYCIN D [Suspect]
     Active Substance: DACTINOMYCIN
     Indication: NEUTROPENIA
     Dosage: .9 MILLIGRAM DAILY;
     Route: 042
     Dates: start: 20170301, end: 20170301
  4. DIFLUCAN [Concomitant]
     Active Substance: FLUCONAZOLE
     Indication: INFECTION
     Dosage: 150 MILLIGRAM DAILY;
     Route: 042
     Dates: start: 20170308, end: 20170312
  5. VANCOMYCIN [Concomitant]
     Active Substance: VANCOMYCIN
     Indication: INFECTION
     Dosage: 570 MILLIGRAM DAILY;
     Route: 042
     Dates: start: 20170310, end: 20170311
  6. VINCRISTIN [Suspect]
     Active Substance: VINCRISTINE
     Indication: NEUTROPENIA
     Dosage: .9 MILLIGRAM DAILY;
     Route: 042
     Dates: start: 20170301, end: 20170301
  7. DOXORUBICIN [Suspect]
     Active Substance: DOXORUBICIN
     Indication: NEUTROPENIA
     Dosage: 18 MILLIGRAM DAILY;
     Route: 042
     Dates: start: 20170301, end: 20170302
  8. MEROPENEM. [Concomitant]
     Active Substance: MEROPENEM
     Indication: INFECTION
     Dosage: 840 MILLIGRAM DAILY;
     Route: 042
     Dates: start: 20170308, end: 20170312
  9. LONQUEX [Suspect]
     Active Substance: LIPEGFILGRASTIM
     Indication: NEUTROPENIA
     Dosage: 0 MILLIGRAM DAILY;
  10. IFOSFAMIDE. [Suspect]
     Active Substance: IFOSFAMIDE
     Indication: NEUTROPENIA
     Dosage: 1800 MILLIGRAM DAILY;
     Route: 042
     Dates: start: 20170301, end: 20170302
  11. ZOFRAN [Concomitant]
     Active Substance: ONDANSETRON HYDROCHLORIDE
     Indication: NAUSEA
     Dosage: 9 MILLIGRAM DAILY;
     Route: 042
     Dates: start: 20170301, end: 20170304

REACTIONS (2)
  - Leukopenia [Recovered/Resolved]
  - Febrile neutropenia [Recovered/Resolved]

NARRATIVE: CASE EVENT DATE: 20170307
